FAERS Safety Report 6231504-7 (Version None)
Quarter: 2009Q2

REPORT INFORMATION
  Report Type: 
  Country: None (occurrence: None)
  Receive Date: 20090616
  Receipt Date: 20090610
  Transmission Date: 20091009
  Serious: Yes (Disabling)
  Sender: FDA-Public Use
  Company Number: B0565419A

PATIENT
  Sex: Female

DRUGS (7)
  1. FLUTIDE DISKUS [Suspect]
     Indication: ASTHMA
     Dosage: 100MCG PER DAY
     Route: 055
     Dates: start: 20090212, end: 20090312
  2. PULMICORT-100 [Concomitant]
     Indication: ASTHMA
     Dosage: 200MCG PER DAY
     Route: 055
     Dates: start: 20080901, end: 20090211
  3. ONON [Concomitant]
     Indication: ASTHMA
     Dosage: 450MG PER DAY
     Route: 048
     Dates: start: 20080901
  4. ADALAT CC [Concomitant]
     Indication: HYPERTENSION
     Dosage: 40MG PER DAY
     Route: 048
     Dates: start: 20080818
  5. UNKNOWN DRUG [Concomitant]
     Indication: HYPERTENSION
     Dosage: 25MG PER DAY
     Route: 048
     Dates: start: 20080818
  6. ALLEGRA [Concomitant]
     Dosage: 120MG PER DAY
     Route: 048
     Dates: start: 20090311, end: 20090407
  7. GENINAX [Concomitant]
     Indication: CHLAMYDIAL INFECTION
     Dosage: 400MG PER DAY
     Route: 048
     Dates: start: 20090311, end: 20090324

REACTIONS (6)
  - APHASIA [None]
  - DYSPHONIA [None]
  - OROPHARYNGEAL DISCOMFORT [None]
  - PHARYNGEAL ERYTHEMA [None]
  - SPEECH DISORDER [None]
  - THROAT IRRITATION [None]
